FAERS Safety Report 22089314 (Version 1)
Quarter: 2023Q1

REPORT INFORMATION
  Report Type: Spontaneous
  Country: US (occurrence: US)
  Receive Date: 20230313
  Receipt Date: 20230313
  Transmission Date: 20230417
  Serious: No
  Sender: FDA-Public Use
  Company Number: US-PERRIGO-22US015774

PATIENT
  Age: 52 Year
  Sex: Female
  Weight: 93.878 kg

DRUGS (4)
  1. NICOTINE POLACRILEX [Suspect]
     Active Substance: NICOTINE
     Indication: Smoking cessation therapy
     Dosage: 2 MG, 3-10 TIMES DAILY PRN
     Route: 002
     Dates: start: 202202
  2. NICOTINE POLACRILEX [Suspect]
     Active Substance: NICOTINE
     Dosage: 2 MG, 3-10 TIMES DAILY PRN
     Route: 002
     Dates: start: 202202
  3. MYRBETRIQ [Concomitant]
     Active Substance: MIRABEGRON
     Indication: Neurogenic bladder
     Dosage: UNK
     Route: 065
     Dates: start: 202203
  4. PREDNISONE [Concomitant]
     Active Substance: PREDNISONE
     Indication: Multiple sclerosis
     Dosage: UNK
     Route: 065
     Dates: start: 20221118

REACTIONS (1)
  - Drug effect less than expected [Unknown]

NARRATIVE: CASE EVENT DATE: 20221024
